FAERS Safety Report 26125775 (Version 1)
Quarter: 2025Q4

REPORT INFORMATION
  Report Type: Spontaneous
  Country: CN (occurrence: CN)
  Receive Date: 20251205
  Receipt Date: 20251205
  Transmission Date: 20260118
  Serious: Yes (Hospitalization)
  Sender: PFIZER
  Company Number: CN-PFIZER INC-PV202500141332

PATIENT
  Age: 11 Year
  Sex: Male
  Weight: 39 kg

DRUGS (5)
  1. CYTARABINE [Suspect]
     Active Substance: CYTARABINE
     Indication: Burkitt^s lymphoma stage III
     Dosage: 2.46 G, 2X/DAY
     Route: 041
     Dates: start: 20251117, end: 20251118
  2. ETOPOSIDE [Suspect]
     Active Substance: ETOPOSIDE
     Indication: Burkitt^s lymphoma stage III
     Dosage: 0.184 G, 1X/DAY
     Route: 041
     Dates: start: 20251119, end: 20251121
  3. RITUXIMAB [Suspect]
     Active Substance: RITUXIMAB
     Indication: Burkitt^s lymphoma stage III
     Dosage: 461.25 MG, 1X/DAY
     Route: 041
     Dates: start: 20251116, end: 20251116
  4. VINDESINE SULFATE [Suspect]
     Active Substance: VINDESINE SULFATE
     Indication: Burkitt^s lymphoma stage III
     Dosage: 3.69 MG, 1X/DAY
     Route: 041
     Dates: start: 20251117, end: 20251117
  5. GLUTATHIONE [Concomitant]
     Active Substance: GLUTATHIONE
     Indication: Prophylaxis

REACTIONS (2)
  - Myelosuppression [Unknown]
  - C-reactive protein increased [Unknown]

NARRATIVE: CASE EVENT DATE: 20251126
